FAERS Safety Report 9184321 (Version 1)
Quarter: 2013Q1

REPORT INFORMATION
  Report Type: Report from Study
  Country: US (occurrence: US)
  Receive Date: 20130322
  Receipt Date: 20130322
  Transmission Date: 20140127
  Serious: No
  Sender: FDA-Public Use
  Company Number: US-VERTEX PHARMACEUTICALS INC.-2013-003919

PATIENT
  Age: 59 Year
  Sex: Male
  Weight: 92 kg

DRUGS (8)
  1. VX-950 (TELAPREVIR) [Suspect]
     Indication: HEPATITIS C
     Dosage: 750 MG, TID
     Route: 048
  2. RIBAVIRIN [Suspect]
     Indication: HEPATITIS C
     Dosage: 200 MG, UNK
  3. PEG INTRON [Suspect]
     Indication: HEPATITIS C
     Dosage: 150 RP
  4. ZYRTEC [Concomitant]
     Dosage: 10 MG, UNK
  5. ADVIL                              /00044201/ [Concomitant]
     Dosage: 200 MG, UNK
  6. ADVIL COLD + SINUS [Concomitant]
  7. MULTIVITAMIN                       /00097801/ [Concomitant]
  8. IMODIUM A-D [Concomitant]
     Dosage: 2 MG, UNK

REACTIONS (6)
  - Dry skin [Unknown]
  - Fatigue [Unknown]
  - Asthenia [Unknown]
  - Rash generalised [Unknown]
  - Pruritus [Unknown]
  - Dysgeusia [Unknown]
